FAERS Safety Report 7185281 (Version 1)
Quarter: 2020Q3

REPORT INFORMATION
  Report Type: Report from Study
  Country: CA (occurrence: CA)
  Receive Date: 20091123
  Receipt Date: 20091123
  Transmission Date: 20201105
  Serious: Yes (Hospitalization)
  Sender: FDA-Public Use
  Company Number: CA-JNJFOC-20091104234

PATIENT
  Age: 62 Year
  Sex: Male
  Weight: 112 kg

DRUGS (49)
  1. GOLIMUMAB [Suspect]
     Active Substance: GOLIMUMAB
     Route: 058
  2. GOLIMUMAB [Suspect]
     Active Substance: GOLIMUMAB
     Route: 058
  3. GOLIMUMAB [Suspect]
     Active Substance: GOLIMUMAB
     Route: 058
  4. GOLIMUMAB [Suspect]
     Active Substance: GOLIMUMAB
     Route: 058
  5. GOLIMUMAB [Suspect]
     Active Substance: GOLIMUMAB
     Route: 058
  6. GOLIMUMAB [Suspect]
     Active Substance: GOLIMUMAB
     Route: 058
  7. GOLIMUMAB [Suspect]
     Active Substance: GOLIMUMAB
     Route: 058
  8. ALTACE [Concomitant]
     Active Substance: RAMIPRIL
     Route: 048
  9. GOLIMUMAB [Suspect]
     Active Substance: GOLIMUMAB
     Route: 058
  10. GOLIMUMAB [Suspect]
     Active Substance: GOLIMUMAB
     Route: 058
  11. GOLIMUMAB [Suspect]
     Active Substance: GOLIMUMAB
     Route: 058
  12. GOLIMUMAB [Suspect]
     Active Substance: GOLIMUMAB
     Route: 058
  13. GOLIMUMAB [Suspect]
     Active Substance: GOLIMUMAB
     Route: 058
  14. GOLIMUMAB [Suspect]
     Active Substance: GOLIMUMAB
     Route: 058
  15. GOLIMUMAB [Suspect]
     Active Substance: GOLIMUMAB
     Route: 058
  16. ADALAT CC [Concomitant]
     Active Substance: NIFEDIPINE
     Route: 048
  17. METHOTREXATE. [Concomitant]
     Active Substance: METHOTREXATE
     Route: 058
  18. GOLIMUMAB [Suspect]
     Active Substance: GOLIMUMAB
     Route: 058
  19. GOLIMUMAB [Suspect]
     Active Substance: GOLIMUMAB
     Route: 058
  20. GOLIMUMAB [Suspect]
     Active Substance: GOLIMUMAB
     Route: 058
  21. GOLIMUMAB [Suspect]
     Active Substance: GOLIMUMAB
     Route: 058
  22. GOLIMUMAB [Suspect]
     Active Substance: GOLIMUMAB
     Route: 058
  23. GOLIMUMAB [Suspect]
     Active Substance: GOLIMUMAB
     Route: 058
  24. GOLIMUMAB [Suspect]
     Active Substance: GOLIMUMAB
     Indication: PSORIATIC ARTHROPATHY
     Route: 058
  25. FOLIC ACID. [Concomitant]
     Active Substance: FOLIC ACID
     Route: 048
  26. LIPITOR [Concomitant]
     Active Substance: ATORVASTATIN CALCIUM
     Route: 048
  27. GOLIMUMAB [Suspect]
     Active Substance: GOLIMUMAB
     Route: 058
  28. GOLIMUMAB [Suspect]
     Active Substance: GOLIMUMAB
     Route: 058
  29. GOLIMUMAB [Suspect]
     Active Substance: GOLIMUMAB
     Route: 058
  30. GOLIMUMAB [Suspect]
     Active Substance: GOLIMUMAB
     Route: 058
  31. GOLIMUMAB [Suspect]
     Active Substance: GOLIMUMAB
     Route: 058
  32. GOLIMUMAB [Suspect]
     Active Substance: GOLIMUMAB
     Route: 058
  33. ASA [Concomitant]
     Active Substance: ASPIRIN
     Route: 048
  34. GOLIMUMAB [Suspect]
     Active Substance: GOLIMUMAB
     Route: 058
  35. GOLIMUMAB [Suspect]
     Active Substance: GOLIMUMAB
     Route: 058
  36. ATENOLOL. [Concomitant]
     Active Substance: ATENOLOL
     Route: 048
  37. TERAZOSIN HYDROCHLORIDE. [Concomitant]
     Active Substance: TERAZOSIN HYDROCHLORIDE
     Route: 048
  38. GOLIMUMAB [Suspect]
     Active Substance: GOLIMUMAB
     Route: 058
  39. GOLIMUMAB [Suspect]
     Active Substance: GOLIMUMAB
     Route: 058
  40. GOLIMUMAB [Suspect]
     Active Substance: GOLIMUMAB
     Route: 058
  41. GOLIMUMAB [Suspect]
     Active Substance: GOLIMUMAB
     Route: 058
  42. GOLIMUMAB [Suspect]
     Active Substance: GOLIMUMAB
     Route: 058
  43. GOLIMUMAB [Suspect]
     Active Substance: GOLIMUMAB
     Route: 058
  44. GOLIMUMAB [Suspect]
     Active Substance: GOLIMUMAB
     Route: 058
  45. GOLIMUMAB [Suspect]
     Active Substance: GOLIMUMAB
     Route: 058
  46. GOLIMUMAB [Suspect]
     Active Substance: GOLIMUMAB
     Route: 058
  47. GOLIMUMAB [Suspect]
     Active Substance: GOLIMUMAB
     Route: 058
  48. HYDROCHLOROTHIAZIDE. [Concomitant]
     Active Substance: HYDROCHLOROTHIAZIDE
     Route: 048
  49. ATACAND [Concomitant]
     Active Substance: CANDESARTAN CILEXETIL
     Route: 048

REACTIONS (1)
  - Haemothorax [Recovered/Resolved]

NARRATIVE: CASE EVENT DATE: 20091020
